FAERS Safety Report 6231947-1 (Version None)
Quarter: 2009Q2

REPORT INFORMATION
  Report Type: 
  Country: None (occurrence: None)
  Receive Date: 20090616
  Receipt Date: 20090602
  Transmission Date: 20091009
  Serious: Yes (Death)
  Sender: FDA-Public Use
  Company Number: BR-MYLANLABS-2009S1010589

PATIENT
  Age: 2 Day
  Weight: 0.94 kg

DRUGS (5)
  1. CUROSURF [Suspect]
     Indication: NEONATAL RESPIRATORY DISTRESS SYNDROME
     Route: 039
     Dates: start: 20090523, end: 20090524
  2. EPINEPHRINE [Concomitant]
  3. DOBUTAMINE HYDROCHLORIDE [Concomitant]
  4. GENTAMICIN SULFATE [Concomitant]
  5. AMPICILLIN [Concomitant]

REACTIONS (1)
  - PULMONARY HAEMORRHAGE [None]
